FAERS Safety Report 17575430 (Version 2)
Quarter: 2020Q1

REPORT INFORMATION
  Report Type: Report from Study
  Country: DE (occurrence: DE)
  Receive Date: 20200324
  Receipt Date: 20200326
  Transmission Date: 20200409
  Serious: Yes (Hospitalization, Other)
  Sender: FDA-Public Use
  Company Number: DE-TEVA-2020-DE-1207941

PATIENT
  Age: 51 Year
  Sex: Female
  Weight: 75 kg

DRUGS (10)
  1. CAELYX (LIPOSOMAL DOXORUBICIN) [Suspect]
     Active Substance: DOXORUBICIN HYDROCHLORIDE
     Dosage: 72 MG 4TH CYCLE(S)
     Route: 042
     Dates: start: 20031114, end: 20031114
  2. CARBOPLATIN. [Suspect]
     Active Substance: CARBOPLATIN
     Indication: ENDOMETRIAL CANCER
     Dosage: 540.15 MG 2ND CYCLE(S)
     Route: 042
     Dates: start: 20030919, end: 20030919
  3. CAELYX (LIPOSOMAL DOXORUBICIN) [Suspect]
     Active Substance: DOXORUBICIN HYDROCHLORIDE
     Dosage: 72.4-72 MG* 3 MONTH(S)
     Route: 042
     Dates: start: 20030822, end: 20031114
  4. CARBOPLATIN. [Suspect]
     Active Substance: CARBOPLATIN
     Dosage: 540.15-790MG* 4 CYCLE(S)
     Route: 042
     Dates: start: 20030822, end: 20031114
  5. CAELYX (LIPOSOMAL DOXORUBICIN) [Suspect]
     Active Substance: DOXORUBICIN HYDROCHLORIDE
     Indication: ENDOMETRIAL CANCER
     Dosage: 72.4 MG 2ND CYCLE(S)
     Route: 042
     Dates: start: 20030919, end: 20030919
  6. CARBOPLATIN. [Suspect]
     Active Substance: CARBOPLATIN
     Dosage: 560 MG 3RD CYCLE(S)
     Route: 042
     Dates: start: 20031017, end: 20031017
  7. CARBOPLATIN. [Suspect]
     Active Substance: CARBOPLATIN
     Dosage: 790 MG 4TH CYCLE(S)
     Route: 042
     Dates: start: 20031114, end: 20031114
  8. CAELYX (LIPOSOMAL DOXORUBICIN) [Suspect]
     Active Substance: DOXORUBICIN HYDROCHLORIDE
     Dosage: 72 MG 3RD CYCLE(S)
     Route: 042
     Dates: start: 20031017, end: 20031017
  9. CARBOPLATIN. [Suspect]
     Active Substance: CARBOPLATIN
     Dosage: 609.51 MG 1ST CYCLE(S)
     Route: 042
     Dates: start: 20030822, end: 20030822
  10. CAELYX (LIPOSOMAL DOXORUBICIN) [Suspect]
     Active Substance: DOXORUBICIN HYDROCHLORIDE
     Dosage: 72.4 MG 1ST CYCLE(S)
     Route: 042
     Dates: start: 20030822, end: 20030822

REACTIONS (2)
  - Thrombocytopenia [Recovered/Resolved]
  - Haemoglobin decreased [Not Recovered/Not Resolved]

NARRATIVE: CASE EVENT DATE: 20031128
